FAERS Safety Report 15406781 (Version 2)
Quarter: 2018Q4

REPORT INFORMATION
  Report Type: Spontaneous
  Country: ZA (occurrence: ZA)
  Receive Date: 20180920
  Receipt Date: 20181015
  Transmission Date: 20190204
  Serious: Yes (Hospitalization)
  Sender: FDA-Public Use
  Company Number: ZA-PFIZER INC-2018377920

PATIENT
  Age: 66 Year
  Sex: Male

DRUGS (7)
  1. CARDURA XL [Suspect]
     Active Substance: DOXAZOSIN MESYLATE
     Dosage: 4 MG, UNK
  2. ECOTRIN [Suspect]
     Active Substance: ASPIRIN
     Dosage: 81 MG, UNK
  3. ZUVAMOR [Suspect]
     Active Substance: ROSUVASTATIN
     Dosage: 10 MG, UNK
  4. HYPOTONE [Suspect]
     Active Substance: METHYLDOPA
     Dosage: 250 MG, UNK
  5. EXFORGE [Suspect]
     Active Substance: AMLODIPINE BESYLATE\VALSARTAN
     Dosage: 10/320 MG
  6. TETRALYSAL [LYMECYCLINE] [Suspect]
     Active Substance: LYMECYCLINE
     Dosage: 300 MG, UNK
  7. EPILIZINE CR [Suspect]
     Active Substance: VALPROATE SODIUM
     Dosage: 300 MG, UNK

REACTIONS (1)
  - Hypertension [Unknown]
